FAERS Safety Report 23653472 (Version 1)
Quarter: 2024Q1

REPORT INFORMATION
  Report Type: Report from Study
  Country: EG (occurrence: EG)
  Receive Date: 20240320
  Receipt Date: 20240320
  Transmission Date: 20240409
  Serious: Yes (Other)
  Sender: FDA-Public Use
  Company Number: EG-002147023-NVSC2023EG143752

PATIENT
  Sex: Female

DRUGS (5)
  1. PIQRAY [Suspect]
     Active Substance: ALPELISIB
     Indication: Breast cancer metastatic
     Dosage: 300 MG, QD (TWO 150MG TABLETS ONCE PER DAY) (STARTED 15 OR 16 MONTHS AGO)
     Route: 048
     Dates: start: 2021, end: 202301
  2. PIQRAY [Suspect]
     Active Substance: ALPELISIB
     Dosage: 200 MG, QD (1 TABLET PER DAY) (DOWNGRADED 10 MONTHS AGO)
     Route: 048
     Dates: start: 202301, end: 202308
  3. PIQRAY [Suspect]
     Active Substance: ALPELISIB
     Dosage: UNK
     Route: 065
  4. VITAMINS [Concomitant]
     Active Substance: VITAMINS
     Indication: Supplementation therapy
     Dosage: UNK
     Route: 065
     Dates: start: 2020
  5. INDERAL [Concomitant]
     Active Substance: PROPRANOLOL HYDROCHLORIDE
     Indication: Dizziness
     Dosage: UNK (STARTED 20 YEARS AGO)
     Route: 065

REACTIONS (8)
  - Renal disorder [Recovering/Resolving]
  - Blood creatinine increased [Recovering/Resolving]
  - Fatigue [Recovering/Resolving]
  - Lethargy [Recovering/Resolving]
  - Somnolence [Recovering/Resolving]
  - Product availability issue [Unknown]
  - Rash [Recovered/Resolved]
  - Off label use [Unknown]

NARRATIVE: CASE EVENT DATE: 20210101
